FAERS Safety Report 6766282-6 (Version None)
Quarter: 2010Q2

REPORT INFORMATION
  Report Type: 
  Country: None (occurrence: None)
  Receive Date: 20100611
  Receipt Date: 20100601
  Transmission Date: 20101027
  Serious: Yes (Hospitalization, Other)
  Sender: FDA-Public Use
  Company Number: JP-PFIZER INC-2010054140

PATIENT
  Age: 85 Year
  Sex: Female
  Weight: 41 kg

DRUGS (12)
  1. VFEND [Suspect]
     Indication: BRONCHOPULMONARY ASPERGILLOSIS
     Dosage: 200 MG, 2X/DAY
     Route: 048
     Dates: start: 20100406, end: 20100401
  2. ASPIRIN [Concomitant]
     Route: 048
     Dates: start: 20030619, end: 20100415
  3. MERISLON [Concomitant]
     Route: 048
     Dates: end: 20100415
  4. TAKEPRON [Concomitant]
     Route: 048
     Dates: end: 20100405
  5. MAALOX [Concomitant]
     Route: 048
     Dates: end: 20100415
  6. ULCERLMIN [Concomitant]
     Route: 048
     Dates: end: 20100415
  7. URSO 250 [Concomitant]
     Route: 048
     Dates: end: 20100415
  8. LAC B [Concomitant]
     Route: 048
     Dates: end: 20100415
  9. AMLODIN [Concomitant]
     Route: 048
     Dates: start: 20030101, end: 20100415
  10. FAMOTIDINE [Concomitant]
     Route: 048
     Dates: start: 20100406, end: 20100415
  11. UNASYN ORAL TABLET [Concomitant]
     Dosage: UNK
     Route: 048
     Dates: start: 20100324, end: 20100328
  12. ASTOMIN [Concomitant]
     Route: 048
     Dates: start: 20100330, end: 20100403

REACTIONS (2)
  - LIVER DISORDER [None]
  - RHABDOMYOLYSIS [None]
